FAERS Safety Report 5019874-9 (Version None)
Quarter: 2006Q2

REPORT INFORMATION
  Report Type: 
  Country: None (occurrence: None)
  Receive Date: 20060607
  Receipt Date: 20060516
  Transmission Date: 20061013
  Serious: Yes (Hospitalization)
  Sender: FDA-Public Use
  Company Number: US-AMGEN-US179939

PATIENT
  Sex: Male
  Weight: 15.4 kg

DRUGS (9)
  1. EPOGEN [Suspect]
     Indication: DIALYSIS
     Dates: start: 20050701
  2. SOMATROPIN [Concomitant]
  3. ERYTHROMYCIN [Concomitant]
     Dates: start: 20060421
  4. METOCLOPRAMIDE [Concomitant]
     Dates: start: 20060421
  5. PREVACID [Concomitant]
     Route: 048
     Dates: start: 20060421
  6. MULTIVITAMIN [Concomitant]
     Dates: start: 20050809
  7. LACTULOSE [Concomitant]
     Route: 048
     Dates: start: 20050712
  8. CALCITRIOL [Concomitant]
     Route: 048
     Dates: start: 20050712
  9. SODIUM PHOSPHATE (32 P) [Concomitant]
     Route: 048
     Dates: start: 20050712

REACTIONS (8)
  - CONDITION AGGRAVATED [None]
  - HAEMOGLOBIN DECREASED [None]
  - INCORRECT DOSE ADMINISTERED [None]
  - MEDICATION ERROR [None]
  - PANCREATITIS [None]
  - SPLENOMEGALY [None]
  - THERAPEUTIC RESPONSE DECREASED [None]
  - VIRAL INFECTION [None]
